FAERS Safety Report 4983754-5 (Version None)
Quarter: 2006Q1

REPORT INFORMATION
  Report Type: 
  Country: None (occurrence: None)
  Receive Date: 20060302
  Receipt Date: 20050831
  Transmission Date: 20060701
  Serious: Yes (Life-Threatening, Hospitalization)
  Sender: FDA-Public Use
  Company Number: OPTN-PR-0508S-0006

PATIENT
  Age: 78 Year
  Sex: Female

DRUGS (23)
  1. OPTISON [Suspect]
     Indication: DYSPNOEA
     Dosage: 4 ML OF 1.5 ML OPTISON DILUTED IN 18.5 ML SALINE, SINGLE DOSE, I.V.
     Route: 042
     Dates: start: 20050831, end: 20050831
  2. OPTISON [Suspect]
     Indication: FATIGUE
     Dosage: 4 ML OF 1.5 ML OPTISON DILUTED IN 18.5 ML SALINE, SINGLE DOSE, I.V.
     Route: 042
     Dates: start: 20050831, end: 20050831
  3. OPTISON [Suspect]
     Indication: ISCHAEMIA
     Dosage: 4 ML OF 1.5 ML OPTISON DILUTED IN 18.5 ML SALINE, SINGLE DOSE, I.V.
     Route: 042
     Dates: start: 20050831, end: 20050831
  4. DOBUTAMINE HCL [Concomitant]
  5. GLYCERYL TRINITRATE (NITROGLYCERIN) [Concomitant]
  6. METOPROLOL TARTRATE [Concomitant]
  7. SALMETEROL XINAFOATE (SEREVENT) [Concomitant]
  8. PEPCID [Concomitant]
  9. SINGULAIR [Concomitant]
  10. CLAVULIN (AUGMENTIN) [Concomitant]
  11. ALTACE [Concomitant]
  12. LASIX [Concomitant]
  13. SALBUTAMOL SULFATE (ALBUTEROL SULFATE) [Concomitant]
  14. LISINOPRIL [Concomitant]
  15. LIPITOR [Concomitant]
  16. POTASSIUM CHLORIDE [Concomitant]
  17. FLUTICASONE PROPIONATE (FLOVENT) [Concomitant]
  18. CHLORDIAZEPOXIDE HCL [Concomitant]
  19. SOLOSITE [Concomitant]
  20. ASCORBIC ACID (VITAMIN C) [Concomitant]
  21. DOCUSATE SODIUM (COLACE) [Concomitant]
  22. SUCRALFATE [Concomitant]
  23. ASPIRIN [Concomitant]

REACTIONS (1)
  - DYSPNOEA EXACERBATED [None]
